FAERS Safety Report 7473886-4 (Version None)
Quarter: 2011Q2

REPORT INFORMATION
  Report Type: 
  Country: None (occurrence: None)
  Receive Date: 20110511
  Receipt Date: 20110503
  Transmission Date: 20111010
  Serious: Yes (Hospitalization, Other)
  Sender: FDA-Public Use
  Company Number: US-ASTRAZENECA-2011SE12304

PATIENT
  Age: 71 Year
  Sex: Female
  Weight: 79.4 kg

DRUGS (23)
  1. SEROQUEL [Suspect]
     Route: 048
     Dates: end: 20100101
  2. SEROQUEL [Suspect]
     Route: 048
  3. SEROQUEL [Suspect]
     Route: 048
  4. KLONOPIN [Concomitant]
     Indication: BIPOLAR DISORDER
  5. SEROQUEL [Suspect]
     Route: 048
     Dates: end: 20100101
  6. TRICOR [Concomitant]
     Indication: HYPERCHOLESTEROLAEMIA
  7. FISH OIL [Concomitant]
  8. TRAMADOL HYDROCHLORIDE [Concomitant]
     Indication: ARTHRITIS
  9. SEROQUEL [Suspect]
     Indication: BIPOLAR DISORDER
     Route: 048
     Dates: start: 20070101
  10. SEROQUEL [Suspect]
     Route: 048
     Dates: start: 20080101
  11. SEROQUEL [Suspect]
     Route: 048
     Dates: start: 20100101
  12. SEROQUEL [Suspect]
     Route: 048
     Dates: start: 20100101
  13. ESTRADIOL [Concomitant]
     Indication: HORMONE THERAPY
  14. LIPITOR [Concomitant]
     Indication: HYPERCHOLESTEROLAEMIA
  15. LASIX [Concomitant]
  16. STOOL SOFTENER [Concomitant]
     Dosage: DAILY
  17. NEXIUM [Suspect]
     Indication: PROPHYLAXIS AGAINST GASTROINTESTINAL ULCER
     Route: 048
     Dates: start: 20050101
  18. PRILOSEC [Suspect]
     Route: 048
  19. SEROQUEL [Suspect]
     Route: 048
     Dates: start: 20080101
  20. ASPIRIN [Concomitant]
  21. SEROQUEL [Suspect]
     Indication: SLEEP DISORDER
     Route: 048
     Dates: start: 20070101
  22. TOPAMAX [Concomitant]
     Indication: BIPOLAR DISORDER
  23. SYNTHROID [Concomitant]
     Indication: THYROID THERAPY

REACTIONS (13)
  - DECREASED APPETITE [None]
  - SOMNOLENCE [None]
  - WEIGHT DECREASED [None]
  - INSOMNIA [None]
  - BIPOLAR DISORDER [None]
  - STENT PLACEMENT [None]
  - FATIGUE [None]
  - DRUG DOSE OMISSION [None]
  - DRUG INEFFECTIVE [None]
  - EATING DISORDER SYMPTOM [None]
  - GASTRIC DISORDER [None]
  - MANIA [None]
  - THERAPY REGIMEN CHANGED [None]
